FAERS Safety Report 22156355 (Version 1)
Quarter: 2023Q1

REPORT INFORMATION
  Report Type: Spontaneous
  Country: US (occurrence: None)
  Receive Date: 20230330
  Receipt Date: 20230330
  Transmission Date: 20230417
  Serious: Yes (Death)
  Sender: FDA-Public Use
  Company Number: None

PATIENT
  Age: 82 Year
  Sex: Male
  Weight: 66 kg

DRUGS (2)
  1. APIXABAN [Suspect]
     Active Substance: APIXABAN
     Indication: Thrombosis prophylaxis
     Dosage: FREQUENCY : TWICE A DAY;?
     Route: 048
     Dates: start: 20221211, end: 20221219
  2. clopidogrel 75mg po daily [Concomitant]
     Dates: start: 20200102, end: 20221219

REACTIONS (2)
  - Subarachnoid haemorrhage [None]
  - Seizure [None]

NARRATIVE: CASE EVENT DATE: 20221219
